FAERS Safety Report 13982691 (Version 2)
Quarter: 2017Q4

REPORT INFORMATION
  Report Type: Spontaneous
  Country: GB (occurrence: GB)
  Receive Date: 20170918
  Receipt Date: 20171019
  Transmission Date: 20180321
  Serious: Yes (Other)
  Sender: FDA-Public Use
  Company Number: GB-009507513-1709GBR004491

PATIENT
  Age: 75 Year
  Sex: Female
  Weight: 75 kg

DRUGS (10)
  1. FENTANYL. [Concomitant]
     Active Substance: FENTANYL
     Dosage: UNK
     Dates: start: 20170905
  2. BRIDION [Suspect]
     Active Substance: SUGAMMADEX
     Indication: ANAESTHESIA REVERSAL
     Dosage: 200 MG ,GIVEN JUST ONCE
     Route: 042
     Dates: start: 20170905, end: 20170905
  3. PROPOFOL. [Concomitant]
     Active Substance: PROPOFOL
     Indication: GENERAL ANAESTHESIA
     Dosage: UNK
     Dates: start: 20170905, end: 20170905
  4. DEXAMETHASONE. [Concomitant]
     Active Substance: DEXAMETHASONE
     Dosage: UNK
     Dates: start: 20170905
  5. ONDANSETRON [Concomitant]
     Active Substance: ONDANSETRON
     Dosage: UNK
     Dates: start: 20170905
  6. CHLORHEXIDINE ACETATE [Concomitant]
     Active Substance: CHLORHEXIDINE ACETATE
  7. ROCURONIUM BROMIDE. [Concomitant]
     Active Substance: ROCURONIUM BROMIDE
     Indication: GENERAL ANAESTHESIA
     Dosage: UNK
     Dates: start: 20170905, end: 20170905
  8. ALFENTANIL HYDROCHLORIDE. [Concomitant]
     Active Substance: ALFENTANIL HYDROCHLORIDE
     Indication: GENERAL ANAESTHESIA
     Dosage: UNK
     Dates: start: 20170905, end: 20170905
  9. SEVOFLURANE. [Concomitant]
     Active Substance: SEVOFLURANE
     Dosage: UNK
     Dates: start: 20170905
  10. HARTMAN CHOONGWAE [Concomitant]
     Dosage: UNK
     Dates: start: 20170905

REACTIONS (8)
  - Acute pulmonary oedema [Unknown]
  - Anaphylactoid reaction [Recovering/Resolving]
  - Hypotension [Recovering/Resolving]
  - Bronchospasm [Recovered/Resolved]
  - Oxygen saturation decreased [Recovering/Resolving]
  - Hypoventilation [Recovered/Resolved]
  - Cough [Recovered/Resolved]
  - Swollen tongue [Recovered/Resolved]

NARRATIVE: CASE EVENT DATE: 20170905
